FAERS Safety Report 7635182-1 (Version None)
Quarter: 2011Q3

REPORT INFORMATION
  Report Type: 
  Country: None (occurrence: None)
  Receive Date: 20110718
  Receipt Date: 20110711
  Transmission Date: 20111222
  Serious: Yes (Other)
  Sender: FDA-Public Use
  Company Number: 2011070066

PATIENT
  Age: 41 Year
  Sex: Male

DRUGS (10)
  1. AMITRIPTYLINE HCL [Suspect]
  2. LIPITOR [Suspect]
     Dosage: 20 MG (20 MG, 1 IN 1 D), ORAL
     Route: 048
  3. AMBIEN [Suspect]
  4. NICOTROL [Suspect]
     Dosage: (10 MG)
  5. INDOCIN [Suspect]
  6. VIAGRA [Suspect]
     Dosage: (100 MG), ORAL
     Route: 048
  7. FLEXERIL [Suspect]
  8. SOMA [Suspect]
  9. KLONOPIN [Suspect]
  10. XANAX [Suspect]

REACTIONS (3)
  - ANKLE FRACTURE [None]
  - CONVULSION [None]
  - OESOPHAGEAL DISORDER [None]
